FAERS Safety Report 19765751 (Version 3)
Quarter: 2021Q3

REPORT INFORMATION
  Report Type: Spontaneous
  Country: JP (occurrence: JP)
  Receive Date: 20210831
  Receipt Date: 20210920
  Transmission Date: 20211014
  Serious: Yes (Hospitalization)
  Sender: FDA-Public Use
  Company Number: JP-NOVOPROD-841098

PATIENT
  Age: 66 Year
  Sex: Male
  Weight: 80 kg

DRUGS (8)
  1. INSULIN LISPRO [Concomitant]
     Active Substance: INSULIN LISPRO
     Dosage: 42.0,U,THRICE DAILY
     Dates: start: 20050511, end: 20210627
  2. METFORMIN [Concomitant]
     Active Substance: METFORMIN HYDROCHLORIDE
     Dosage: 1000.0,MG,TWICE DAILY
     Dates: start: 20200304
  3. NOVORAPID [Suspect]
     Active Substance: INSULIN ASPART
     Dosage: 7 + 7 + 4
  4. NOVORAPID [Suspect]
     Active Substance: INSULIN ASPART
     Dosage: 10 + 10 + 6
     Dates: start: 20210812
  5. VILDAGLIPTIN [Concomitant]
     Active Substance: VILDAGLIPTIN
     Dosage: 100.0,MG,TWICE DAILY
     Dates: start: 20200304
  6. NOVORAPID [Suspect]
     Active Substance: INSULIN ASPART
     Dosage: UNK
  7. TOFOGLIFLOZIN [Concomitant]
     Active Substance: TOFOGLIFLOZIN
     Dosage: 20.0,MG,ONCE DAILY
     Dates: start: 20160801
  8. INSULIN GLARGINE [Concomitant]
     Active Substance: INSULIN GLARGINE
     Dosage: 28.0,U,ONCE DAILY
     Dates: start: 20161217, end: 20210627

REACTIONS (1)
  - Hypoglycaemia [Recovered/Resolved]

NARRATIVE: CASE EVENT DATE: 20210805
